FAERS Safety Report 5023364-7 (Version None)
Quarter: 2006Q2

REPORT INFORMATION
  Report Type: 
  Country: None (occurrence: None)
  Receive Date: 20060605
  Receipt Date: 20060516
  Transmission Date: 20061013
  Serious: Yes (Other)
  Sender: FDA-Public Use
  Company Number: HQWYE410119MAY06

PATIENT
  Sex: Male

DRUGS (2)
  1. REFACTO [Suspect]
     Indication: ANTI FACTOR VIII ANTIBODY POSITIVE
     Dosage: 200 IU/KG 1X PER 1 DAY
  2. REFACTO [Suspect]
     Indication: OFF LABEL USE
     Dosage: 200 IU/KG 1X PER 1 DAY

REACTIONS (1)
  - DRUG INEFFECTIVE FOR UNAPPROVED INDICATION [None]
